FAERS Safety Report 9250892 (Version 3)
Quarter: 2014Q2

REPORT INFORMATION
  Report Type: Spontaneous
  Country: US (occurrence: US)
  Receive Date: 20130424
  Receipt Date: 20140530
  Transmission Date: 20141212
  Serious: Yes (Hospitalization)
  Sender: FDA-Public Use
  Company Number: US-BAYER-2013-051026

PATIENT
  Age: 35 Year
  Sex: Female
  Weight: 105.22 kg

DRUGS (6)
  1. YAZ [Suspect]
     Dosage: UNK
     Dates: start: 200911, end: 201006
  2. NORVASC [Concomitant]
     Indication: HYPERTENSION
     Dosage: UNK
     Dates: start: 2008
  3. WELLBUTRIN [Concomitant]
     Indication: ANXIETY
     Dosage: 150 MG, BID
     Dates: start: 2001
  4. WELLBUTRIN [Concomitant]
     Indication: SMOKING CESSATION THERAPY
  5. NITROFURANTOIN [Concomitant]
  6. ALPRAZOLAM [Concomitant]
     Dosage: 0.5 MG, UNK

REACTIONS (11)
  - Pulmonary embolism [None]
  - Deep vein thrombosis [None]
  - Loss of consciousness [None]
  - Circulatory collapse [None]
  - Dyspnoea [None]
  - Injury [None]
  - Pain [None]
  - Emotional distress [None]
  - Anxiety [None]
  - Psychological trauma [None]
  - Mental disorder [None]
